FAERS Safety Report 24133549 (Version 1)
Quarter: 2024Q3

REPORT INFORMATION
  Report Type: Spontaneous
  Country: US (occurrence: None)
  Receive Date: 20240724
  Receipt Date: 20240724
  Transmission Date: 20241016
  Serious: Yes (Hospitalization, Other)
  Sender: Public
  Company Number: None

PATIENT
  Age: 21 Year
  Sex: Female
  Weight: 65.25 kg

DRUGS (4)
  1. ZURZUVAE [Suspect]
     Active Substance: ZURANOLONE
     Indication: Perinatal depression
     Dates: start: 20240628, end: 20240707
  2. LAMICTAL [Concomitant]
  3. VYVANSE [Concomitant]
     Active Substance: LISDEXAMFETAMINE DIMESYLATE
  4. Levohyroxine [Concomitant]

REACTIONS (3)
  - Sleep paralysis [None]
  - Fall [None]
  - Hallucinations, mixed [None]

NARRATIVE: CASE EVENT DATE: 20240713
